FAERS Safety Report 10401255 (Version 2)
Quarter: 2014Q3

REPORT INFORMATION
  Report Type: Spontaneous
  Country: US (occurrence: US)
  Receive Date: 20140822
  Receipt Date: 20140912
  Transmission Date: 20150326
  Serious: Yes (Hospitalization, Other)
  Sender: FDA-Public Use
  Company Number: US-BIOGENIDEC-2014BI083696

PATIENT
  Age: 88 Year
  Sex: Male

DRUGS (1)
  1. AVONEX [Suspect]
     Active Substance: INTERFERON BETA-1A
     Indication: MULTIPLE SCLEROSIS
     Route: 030
     Dates: start: 19991229

REACTIONS (3)
  - Abdominal pain [Recovered/Resolved]
  - Coronary artery disease [Recovered/Resolved]
  - Mitral valve sclerosis [Not Recovered/Not Resolved]

NARRATIVE: CASE EVENT DATE: 201407
